FAERS Safety Report 19860529 (Version 2)
Quarter: 2021Q3

REPORT INFORMATION
  Report Type: Spontaneous
  Country: FR (occurrence: FR)
  Receive Date: 20210920
  Receipt Date: 20210924
  Transmission Date: 20211014
  Serious: No
  Sender: FDA-Public Use
  Company Number: FR-ROCHE-2910891

PATIENT
  Sex: Male

DRUGS (1)
  1. PEGASYS [Suspect]
     Active Substance: PEGINTERFERON ALFA-2A
     Indication: PRODUCT USED FOR UNKNOWN INDICATION
     Dosage: 2910891 90 MCG/0.5 ML
     Route: 065
     Dates: start: 202107

REACTIONS (5)
  - Product storage error [Unknown]
  - Injection site swelling [Unknown]
  - Injection site erythema [Unknown]
  - Intercepted product storage error [Unknown]
  - Haematoma [Unknown]
